FAERS Safety Report 4680714-9 (Version None)
Quarter: 2005Q2

REPORT INFORMATION
  Report Type: 
  Country: None (occurrence: None)
  Receive Date: 20050601
  Receipt Date: 20050520
  Transmission Date: 20051028
  Serious: Yes (Other)
  Sender: FDA-Public Use
  Company Number: 2005077528

PATIENT
  Age: 77 Year
  Sex: Female
  Weight: 78 kg

DRUGS (9)
  1. NORVASC [Suspect]
     Indication: HYPERTENSION
     Dosage: 5 MG (5 MG, DAILY), ORAL
     Route: 048
     Dates: start: 20050517, end: 20050519
  2. BISOPROLOL (BISOPROLOL) [Concomitant]
  3. BENAZEPRIL HCL [Concomitant]
  4. FUROSEMIDE [Concomitant]
  5. DOXAZOSIN (DOXAZOSIN) [Concomitant]
  6. CILAZARIL (CILAZARIL) [Concomitant]
  7. DILTIAZEM [Concomitant]
  8. PRIMIDONE [Concomitant]
  9. VITAMINS (VITAMINS) [Concomitant]

REACTIONS (6)
  - BODY TEMPERATURE INCREASED [None]
  - DIZZINESS [None]
  - EYE IRRITATION [None]
  - FACE OEDEMA [None]
  - LACRIMATION INCREASED [None]
  - SKIN WARM [None]
